FAERS Safety Report 5602294-3 (Version None)
Quarter: 2008Q1

REPORT INFORMATION
  Report Type: 
  Country: None (occurrence: None)
  Receive Date: 20080125
  Receipt Date: 20080118
  Transmission Date: 20080703
  Serious: Yes (Other)
  Sender: FDA-Public Use
  Company Number: US-AVENTIS-200810410US

PATIENT
  Age: 67 Year
  Sex: Male

DRUGS (4)
  1. LANTUS [Suspect]
     Indication: TYPE 2 DIABETES MELLITUS
     Route: 051
     Dates: start: 20070101
  2. METFORMIN HCL [Concomitant]
  3. ENALAPRIL MALEATE [Concomitant]
     Dosage: DOSE: UNK
  4. DIURETICS [Concomitant]
     Dosage: DOSE: UNK

REACTIONS (3)
  - HYPERHIDROSIS [None]
  - INCREASED APPETITE [None]
  - WEIGHT INCREASED [None]
